FAERS Safety Report 18579989 (Version 1)
Quarter: 2020Q4

REPORT INFORMATION
  Report Type: Spontaneous
  Country: US (occurrence: US)
  Receive Date: 20201204
  Receipt Date: 20201204
  Transmission Date: 20210114
  Serious: Yes (Other)
  Sender: FDA-Public Use
  Company Number: US-GILEAD-2020-0506907

PATIENT

DRUGS (1)
  1. TRUVADA [Suspect]
     Active Substance: EMTRICITABINE\TENOFOVIR DISOPROXIL FUMARATE
     Indication: PRODUCT USED FOR UNKNOWN INDICATION
     Dosage: UNK
     Route: 048
     Dates: start: 201206, end: 20180205

REACTIONS (8)
  - Osteopenia [Unknown]
  - Bone infarction [Unknown]
  - Osteoarthritis [Unknown]
  - Bone density decreased [Unknown]
  - Tooth loss [Unknown]
  - Osteonecrosis [Unknown]
  - Joint effusion [Unknown]
  - Cervical spinal stenosis [Unknown]
